FAERS Safety Report 18568605 (Version 1)
Quarter: 2020Q4

REPORT INFORMATION
  Report Type: Spontaneous
  Country: US (occurrence: US)
  Receive Date: 20201201
  Receipt Date: 20201201
  Transmission Date: 20210114
  Serious: Yes (Hospitalization)
  Sender: FDA-Public Use
  Company Number: None

PATIENT
  Age: 59 Year
  Sex: Female

DRUGS (13)
  1. OXYCODONE [Concomitant]
     Active Substance: OXYCODONE
  2. JANUVIA [Concomitant]
     Active Substance: SITAGLIPTIN PHOSPHATE
  3. TRESIBA [Concomitant]
     Active Substance: INSULIN DEGLUDEC
  4. DOK [Concomitant]
     Active Substance: DOCUSATE SODIUM
  5. GABAPENTIN. [Concomitant]
     Active Substance: GABAPENTIN
  6. ROSUVASTATIN. [Concomitant]
     Active Substance: ROSUVASTATIN
  7. DULOXETINE. [Concomitant]
     Active Substance: DULOXETINE
  8. DOXYCYCLINE. [Concomitant]
     Active Substance: DOXYCYCLINE
  9. LISINOPRIL. [Concomitant]
     Active Substance: LISINOPRIL
  10. HUMIRA [Suspect]
     Active Substance: ADALIMUMAB
     Indication: HIDRADENITIS
     Dosage: ?          OTHER FREQUENCY:ONCE A WEEK;?
     Route: 058
     Dates: start: 20200513
  11. TIZANIDINE. [Concomitant]
     Active Substance: TIZANIDINE
  12. LANTUS [Concomitant]
     Active Substance: INSULIN GLARGINE
  13. VICTOZA [Concomitant]
     Active Substance: LIRAGLUTIDE

REACTIONS (2)
  - Lower limb fracture [None]
  - Condition aggravated [None]

NARRATIVE: CASE EVENT DATE: 20200927
